FAERS Safety Report 6061783-0 (Version None)
Quarter: 2009Q1

REPORT INFORMATION
  Report Type: 
  Country: None (occurrence: None)
  Receive Date: 20090202
  Receipt Date: 20090123
  Transmission Date: 20090719
  Serious: Yes (Other)
  Sender: FDA-Public Use
  Company Number: BR-SANOFI-SYNTHELABO-A01200900695

PATIENT
  Sex: Female
  Weight: 155 kg

DRUGS (2)
  1. LORAX [Concomitant]
     Indication: INSOMNIA
     Dosage: UNK
     Route: 065
  2. STILNOX [Suspect]
     Indication: INSOMNIA
     Route: 048
     Dates: start: 20081226, end: 20081226

REACTIONS (9)
  - AGITATION [None]
  - CONFUSIONAL STATE [None]
  - DELIRIUM [None]
  - DEPRESSED LEVEL OF CONSCIOUSNESS [None]
  - DRUG INEFFECTIVE [None]
  - HALLUCINATIONS, MIXED [None]
  - HYPOAESTHESIA [None]
  - MUSCULAR WEAKNESS [None]
  - PAIN [None]
